FAERS Safety Report 21623799 (Version 4)
Quarter: 2023Q1

REPORT INFORMATION
  Report Type: Report from Study
  Country: US (occurrence: US)
  Receive Date: 20221121
  Receipt Date: 20230127
  Transmission Date: 20230418
  Serious: Yes (Hospitalization)
  Sender: FDA-Public Use
  Company Number: US-PFIZER INC-PV202200099926

PATIENT
  Age: 67 Year
  Sex: Female

DRUGS (2)
  1. AXITINIB [Suspect]
     Active Substance: AXITINIB
     Indication: Ovarian cancer
     Dosage: 5 MG, BID
     Route: 048
     Dates: start: 20220826, end: 20221106
  2. TALAZOPARIB [Suspect]
     Active Substance: TALAZOPARIB
     Indication: Ovarian cancer
     Dosage: 1 MG, DAILY
     Route: 048
     Dates: start: 20220826, end: 20221106

REACTIONS (1)
  - Pancreatitis [Recovered/Resolved]

NARRATIVE: CASE EVENT DATE: 20221107
